FAERS Safety Report 11753822 (Version 1)
Quarter: 2015Q4

REPORT INFORMATION
  Report Type: Spontaneous
  Country: US (occurrence: None)
  Receive Date: 20151118
  Receipt Date: 20151118
  Transmission Date: 20160304
  Serious: Yes (Other)
  Sender: FDA-Public Use
  Company Number: None

PATIENT
  Age: 57 Year
  Sex: Male

DRUGS (1)
  1. TESTOST CYP [Suspect]
     Active Substance: TESTOSTERONE CYPIONATE
     Dosage: EVERY TWO WEEKS
     Route: 030

REACTIONS (2)
  - Medication error [None]
  - Extra dose administered [None]

NARRATIVE: CASE EVENT DATE: 20151117
